FAERS Safety Report 21821710 (Version 2)
Quarter: 2024Q4

REPORT INFORMATION
  Report Type: Spontaneous
  Country: US (occurrence: US)
  Receive Date: 20230105
  Receipt Date: 20241015
  Transmission Date: 20250115
  Serious: No
  Sender: NOVARTIS
  Company Number: US-002147023-NVSC2023US001583

PATIENT
  Sex: Female
  Weight: 91.6 kg

DRUGS (1)
  1. LEQVIO [Suspect]
     Active Substance: INCLISIRAN SODIUM
     Indication: Dyslipidaemia
     Dosage: UNK
     Route: 065

REACTIONS (2)
  - Pain in extremity [Unknown]
  - Injection site pruritus [Unknown]
